FAERS Safety Report 10989942 (Version 1)
Quarter: 2015Q2

REPORT INFORMATION
  Report Type: Spontaneous
  Country: CH (occurrence: CH)
  Receive Date: 20150406
  Receipt Date: 20150406
  Transmission Date: 20150821
  Serious: Yes (Other)
  Sender: FDA-Public Use
  Company Number: CH-TAKEDA-2015MPI001864

PATIENT

DRUGS (7)
  1. VELCADE [Suspect]
     Active Substance: BORTEZOMIB
     Indication: RENAL AMYLOIDOSIS
  2. CYCLOPHOSPHAMIDE. [Concomitant]
     Active Substance: CYCLOPHOSPHAMIDE
     Indication: RENAL AMYLOIDOSIS
  3. CYCLOPHOSPHAMIDE. [Concomitant]
     Active Substance: CYCLOPHOSPHAMIDE
     Indication: HEPATIC AMYLOIDOSIS
     Dosage: UNK
     Route: 065
     Dates: end: 2013
  4. DOXORUBICIN [Concomitant]
     Active Substance: DOXORUBICIN
     Dosage: UNK
     Route: 065
  5. DEXAMETHASONE. [Concomitant]
     Active Substance: DEXAMETHASONE
     Indication: RENAL AMYLOIDOSIS
  6. VELCADE [Suspect]
     Active Substance: BORTEZOMIB
     Indication: HEPATIC AMYLOIDOSIS
     Dosage: UNK
     Route: 065
     Dates: end: 2013
  7. DEXAMETHASONE. [Concomitant]
     Active Substance: DEXAMETHASONE
     Indication: HEPATIC AMYLOIDOSIS
     Dosage: UNK
     Route: 065
     Dates: end: 2013

REACTIONS (2)
  - Hepatic fibrosis [Unknown]
  - Product use issue [Unknown]
